FAERS Safety Report 5038004-0 (Version None)
Quarter: 2006Q2

REPORT INFORMATION
  Report Type: 
  Country: None (occurrence: None)
  Receive Date: 20060601
  Receipt Date: 20060206
  Transmission Date: 20061013
  Serious: No
  Sender: FDA-Public Use
  Company Number: 2006PV008243

PATIENT
  Age: 62 Year
  Sex: Male
  Weight: 100.6985 kg

DRUGS (6)
  1. BYETTA [Suspect]
     Indication: DIABETES MELLITUS NON-INSULIN-DEPENDENT
     Dosage: 5 MCG;BID;SC
     Route: 058
     Dates: start: 20060203
  2. GLYBURIDE [Concomitant]
  3. PRANDIN [Concomitant]
  4. FLOMAX [Concomitant]
  5. AMARYL [Concomitant]
  6. CIPROFLOXACIN HCL [Concomitant]

REACTIONS (7)
  - EYE PRURITUS [None]
  - HEADACHE [None]
  - HYPOAESTHESIA [None]
  - HYPOAESTHESIA ORAL [None]
  - INJECTION SITE ERYTHEMA [None]
  - PRURITUS [None]
  - RASH MACULAR [None]
